FAERS Safety Report 4334557-6 (Version None)
Quarter: 2004Q2

REPORT INFORMATION
  Report Type: 
  Country: None (occurrence: None)
  Receive Date: 20040407
  Receipt Date: 20040312
  Transmission Date: 20050107
  Serious: Yes (Disabling)
  Sender: FDA-Public Use
  Company Number: JP-ROCHE-361475

PATIENT
  Age: 74 Year
  Sex: Female

DRUGS (8)
  1. PERDIPINE [Suspect]
     Indication: HYPERTENSION
     Route: 048
  2. AMLODIN [Suspect]
     Indication: DRUG USE FOR UNKNOWN INDICATION
     Route: 048
  3. ASPIRIN DIALUMINATE [Concomitant]
     Route: 048
  4. FERROUS SODIUM CITRATE [Concomitant]
     Route: 048
  5. REBAMIPIDE [Concomitant]
  6. ROXATIDINE ACETATE HCL [Concomitant]
     Route: 048
  7. SUCRALFATE [Concomitant]
  8. SENNOSIDE [Concomitant]
     Route: 048

REACTIONS (1)
  - GINGIVAL HYPERPLASIA [None]
